FAERS Safety Report 16907163 (Version 1)
Quarter: 2019Q4

REPORT INFORMATION
  Report Type: Spontaneous
  Country: US (occurrence: US)
  Receive Date: 20190819
  Receipt Date: 20190819
  Transmission Date: 20200122
  Serious: Yes (Death)
  Sender: FDA-Public Use
  Company Number: None

PATIENT
  Age: 60 Year
  Sex: Male

DRUGS (7)
  1. CYMBALTA [Concomitant]
     Active Substance: DULOXETINE HYDROCHLORIDE
  2. DALFAMPRIDINE 10 MG [Suspect]
     Active Substance: DALFAMPRIDINE
     Indication: MULTIPLE SCLEROSIS
     Route: 048
  3. HUMULIN NOS [Concomitant]
     Active Substance: INSULIN HUMAN
  4. OCREVUS [Concomitant]
     Active Substance: OCRELIZUMAB
  5. AMBIEN [Concomitant]
     Active Substance: ZOLPIDEM TARTRATE
  6. FOLIS ACID [Concomitant]
  7. LISINOPRIL. [Concomitant]
     Active Substance: LISINOPRIL

REACTIONS (1)
  - Death [None]

NARRATIVE: CASE EVENT DATE: 20190721
